FAERS Safety Report 8302423-7 (Version None)
Quarter: 2012Q2

REPORT INFORMATION
  Report Type: 
  Country: None (occurrence: None)
  Receive Date: 20120420
  Receipt Date: 20120411
  Transmission Date: 20120825
  Serious: Yes (Other)
  Sender: FDA-Public Use
  Company Number: NL-TEVA-333505ISR

PATIENT
  Sex: Female
  Weight: 70 kg

DRUGS (2)
  1. METHOTREXATE [Suspect]
     Indication: RHEUMATOID ARTHRITIS
     Dosage: 15 MILLIGRAM;
     Dates: start: 20100101
  2. DICLOFENAC SODIUM [Suspect]
     Indication: RHEUMATOID ARTHRITIS
     Dates: start: 20100101

REACTIONS (2)
  - TOOTH INJURY [None]
  - TOOTH INFECTION [None]
